FAERS Safety Report 8490312-7 (Version None)
Quarter: 2012Q3

REPORT INFORMATION
  Report Type: 
  Country: None (occurrence: None)
  Receive Date: 20120705
  Receipt Date: 20120628
  Transmission Date: 20120928
  Serious: Yes (Hospitalization, Other)
  Sender: FDA-Public Use
  Company Number: US-JNJFOC-20120400507

PATIENT
  Sex: Female
  Weight: 98.88 kg

DRUGS (8)
  1. TRAMADOL HYDROCHLORIDE [Concomitant]
     Indication: ARTHRALGIA
  2. HYDROXYCHLOROQUINE SULFATE [Concomitant]
     Indication: ARTHRITIS
  3. HYDROCHLOROTHIAZIDE [Concomitant]
     Indication: HYPERTENSION
  4. REMICADE [Suspect]
     Route: 042
     Dates: start: 20120307, end: 20120308
  5. QUINAPRIL [Concomitant]
     Indication: HYPERTENSION
  6. REMICADE [Suspect]
     Indication: PSORIATIC ARTHROPATHY
     Route: 042
     Dates: start: 20110629
  7. ASACOL [Concomitant]
     Indication: CROHN'S DISEASE
  8. CALCIUM WITH VITAMIN D [Concomitant]

REACTIONS (10)
  - HEADACHE [None]
  - DIARRHOEA [None]
  - BLOOD PRESSURE INCREASED [None]
  - CHEST DISCOMFORT [None]
  - FEELING HOT [None]
  - RASH [None]
  - HYPERHIDROSIS [None]
  - INFUSION RELATED REACTION [None]
  - VOMITING [None]
  - SWELLING FACE [None]
